FAERS Safety Report 8099925-8 (Version None)
Quarter: 2012Q1

REPORT INFORMATION
  Report Type: 
  Country: None (occurrence: None)
  Receive Date: 20120129
  Receipt Date: 20111123
  Transmission Date: 20120608
  Serious: Yes (Other)
  Sender: FDA-Public Use
  Company Number: US-ABBOTT-11P-163-0878197-00

PATIENT
  Sex: Female
  Weight: 57.658 kg

DRUGS (13)
  1. MULTI-VITAMINS [Concomitant]
     Indication: PRODUCT USED FOR UNKNOWN INDICATION
     Route: 048
     Dates: start: 20080622, end: 20090318
  2. ENTOCORT EC [Concomitant]
     Route: 048
     Dates: start: 20081109, end: 20081209
  3. CIMZIA [Concomitant]
     Indication: CROHN'S DISEASE
     Route: 050
     Dates: start: 20081015, end: 20081030
  4. ENTOCORT EC [Concomitant]
     Indication: CROHN'S DISEASE
     Route: 048
     Dates: start: 20080917, end: 20081007
  5. ADVAIR DISKUS 100/50 [Concomitant]
     Indication: PRODUCT USED FOR UNKNOWN INDICATION
     Route: 055
     Dates: start: 20090310, end: 20090318
  6. HUMIRA [Suspect]
     Indication: CROHN'S DISEASE
     Route: 050
     Dates: start: 20080622, end: 20080918
  7. ALBUTEROL [Concomitant]
     Indication: PRODUCT USED FOR UNKNOWN INDICATION
     Dosage: 1-2 PUFFS
     Route: 055
     Dates: start: 20090305, end: 20090309
  8. OMEGA-3 FATTY ACIDS [Concomitant]
     Indication: PRODUCT USED FOR UNKNOWN INDICATION
     Route: 048
     Dates: start: 20080622, end: 20080920
  9. OMEGA-3 FATTY ACIDS [Concomitant]
     Route: 048
     Dates: start: 20080921, end: 20090318
  10. ENTOCORT EC [Concomitant]
     Route: 048
     Dates: start: 20081008, end: 20081108
  11. ENTOCORT EC [Concomitant]
     Route: 048
     Dates: start: 20090301, end: 20090318
  12. CIMZIA [Concomitant]
     Route: 050
     Dates: start: 20081101, end: 20090318
  13. ENTOCORT EC [Concomitant]
     Route: 048
     Dates: start: 20081210, end: 20090228

REACTIONS (8)
  - PYREXIA [None]
  - DYSPEPSIA [None]
  - NASOPHARYNGITIS [None]
  - HEADACHE [None]
  - PILONIDAL CYST [None]
  - SINUS DISORDER [None]
  - PARANASAL SINUS HYPERSECRETION [None]
  - BRONCHITIS [None]
